FAERS Safety Report 4267018-3 (Version None)
Quarter: 2004Q1

REPORT INFORMATION
  Report Type: 
  Country: None (occurrence: None)
  Receive Date: 20040107
  Receipt Date: 20031231
  Transmission Date: 20041129
  Serious: Yes (Life-Threatening, Hospitalization)
  Sender: FDA-Public Use
  Company Number: US-JNJFOC-20031203572

PATIENT
  Age: 13 Year
  Sex: Male

DRUGS (9)
  1. CONCERTA [Suspect]
     Indication: ATTENTION DEFICIT/HYPERACTIVITY DISORDER
     Dosage: SEE IMAGE
     Route: 048
     Dates: start: 20030101, end: 20030101
  2. CONCERTA [Suspect]
     Indication: ATTENTION DEFICIT/HYPERACTIVITY DISORDER
     Dosage: SEE IMAGE
     Route: 048
     Dates: end: 20030601
  3. COUMADIN [Concomitant]
  4. LANOXIN [Concomitant]
  5. LASIX [Concomitant]
  6. PROZAC [Concomitant]
  7. ZYRTEC [Concomitant]
  8. CAPOTEN [Concomitant]
  9. CORDARONE [Concomitant]

REACTIONS (2)
  - SUDDEN CARDIAC DEATH [None]
  - VENTRICULAR EXTRASYSTOLES [None]
